FAERS Safety Report 6531872-2 (Version None)
Quarter: 2010Q1

REPORT INFORMATION
  Report Type: 
  Country: None (occurrence: None)
  Receive Date: 20100108
  Receipt Date: 20091230
  Transmission Date: 20100710
  Serious: Yes (Death, Other)
  Sender: FDA-Public Use
  Company Number: US-BAXTER-2009BH014517

PATIENT
  Age: 63 Year
  Sex: Male

DRUGS (19)
  1. HEPARIN SODIUM INJECTION [Suspect]
     Indication: DRUG USE FOR UNKNOWN INDICATION
     Route: 040
     Dates: start: 20071121, end: 20071212
  2. HEPARIN SODIUM INJECTION [Suspect]
     Route: 040
     Dates: start: 20071121, end: 20071212
  3. HEPARIN SODIUM INJECTION [Suspect]
     Route: 040
     Dates: start: 20071121, end: 20071212
  4. HEPARIN SODIUM INJECTION [Suspect]
     Route: 041
     Dates: start: 20071121, end: 20071212
  5. HEPARIN SODIUM INJECTION [Suspect]
     Route: 042
     Dates: start: 20071212, end: 20071212
  6. HEPARIN SODIUM INJECTION [Suspect]
     Route: 041
     Dates: start: 20071121, end: 20071212
  7. HEPARIN SODIUM INJECTION [Suspect]
     Route: 041
     Dates: start: 20071121, end: 20071212
  8. DIGOXIN [Concomitant]
     Indication: DRUG USE FOR UNKNOWN INDICATION
     Route: 065
  9. WARFARIN SODIUM [Concomitant]
     Indication: DRUG USE FOR UNKNOWN INDICATION
     Route: 065
  10. GLUCOPHAGE [Concomitant]
     Indication: DRUG USE FOR UNKNOWN INDICATION
     Route: 065
  11. SIMVASTATIN [Concomitant]
     Indication: DRUG USE FOR UNKNOWN INDICATION
     Route: 065
  12. VITAMIN B-12 [Concomitant]
     Indication: DRUG USE FOR UNKNOWN INDICATION
     Route: 030
  13. INSULIN HUMAN [Concomitant]
     Indication: DRUG USE FOR UNKNOWN INDICATION
     Route: 058
  14. PREDNISONE [Concomitant]
     Indication: DRUG USE FOR UNKNOWN INDICATION
     Route: 065
  15. PHOSLO [Concomitant]
     Indication: DRUG USE FOR UNKNOWN INDICATION
     Route: 065
  16. CYCLOPHOSPHAMIDE [Concomitant]
     Indication: DRUG USE FOR UNKNOWN INDICATION
     Route: 065
  17. METOPROLOL [Concomitant]
     Indication: DRUG USE FOR UNKNOWN INDICATION
     Route: 065
  18. PROTONIX [Concomitant]
     Indication: DRUG USE FOR UNKNOWN INDICATION
     Route: 065
  19. HUMULIN R [Concomitant]
     Indication: DRUG USE FOR UNKNOWN INDICATION
     Route: 065

REACTIONS (13)
  - CHILLS [None]
  - DYSPNOEA [None]
  - HYPOTENSION [None]
  - LETHARGY [None]
  - MALAISE [None]
  - OEDEMA [None]
  - PYREXIA [None]
  - RENAL FAILURE ACUTE [None]
  - SEPSIS [None]
  - TACHYCARDIA [None]
  - THROMBOCYTOPENIA [None]
  - THROMBOSIS [None]
  - VASCULITIS [None]
